FAERS Safety Report 9406260 (Version 1)
Quarter: 2013Q3

REPORT INFORMATION
  Report Type: Spontaneous
  Country: US (occurrence: US)
  Receive Date: 20130717
  Receipt Date: 20130717
  Transmission Date: 20140515
  Serious: No
  Sender: FDA-Public Use
  Company Number: US-BAUSCH-BL-2013-002206

PATIENT
  Age: 39 Year
  Sex: Female

DRUGS (19)
  1. BESIVANCE (BESIFLOXACIN OPHTHALMIC SUSPENSION) 0.6% [Suspect]
     Indication: PREOPERATIVE CARE
     Dosage: 1 DROP; TWICE A DAY; OPHTHALMIC
     Route: 047
     Dates: start: 20130409, end: 20130410
  2. BESIVANCE (BESIFLOXACIN OPHTHALMIC SUSPENSION) 0.6% [Suspect]
     Indication: POSTOPERATIVE CARE
     Dosage: 1 DROP; TWICE A DAY; OPHTHALMIC
     Route: 047
     Dates: start: 20130412, end: 20130415
  3. BESIVANCE (BESIFLOXACIN OPHTHALMIC SUSPENSION) 0.6% [Suspect]
     Indication: OFF LABEL USE
     Dosage: 1 DROP; DAILY; OPHTHALMIC
     Route: 047
     Dates: start: 20130416, end: 20130416
  4. LOTEMAX (LOTEPREDNOL ETABONATE OPHTHALMIC GEL 0.5%) [Concomitant]
     Indication: POSTOPERATIVE CARE
     Dosage: 1 DROP; TWICE A DAY; OPHTHALMIC
     Route: 047
     Dates: start: 20130413, end: 20130415
  5. PREDNISOLONE ACETATE [Concomitant]
     Indication: POSTOPERATIVE CARE
     Dosage: 1 DROP; DAILY; OPHTHALMIC
     Route: 047
     Dates: start: 20130411, end: 20130411
  6. PREDNISOLONE ACETATE [Concomitant]
     Dosage: 1 DROP; FOUR TIMES A DAY; OPHTHALMIC
     Route: 047
     Dates: start: 20130412, end: 20130412
  7. PREDNISOLONE ACETATE [Concomitant]
     Dosage: 1 DROP; TWICE A DAY; OPHTHALMIC
     Route: 047
     Dates: start: 20130413, end: 20130415
  8. PREDNISOLONE ACETATE [Concomitant]
     Dosage: 1 DROP; FIVE TIMES A DAY; OPHTHALMIC
     Route: 047
     Dates: start: 20130416, end: 20130416
  9. PREDNISOLONE ACETATE [Concomitant]
     Dosage: 1 DROP; EVERY TWO HOURS; OPHTHALMIC
     Route: 047
     Dates: start: 20130417
  10. BROMDAY 0.09% [Concomitant]
     Indication: POSTOPERATIVE CARE
     Dosage: 1 DROP; DAILY; OPHTHALMIC
     Route: 047
     Dates: start: 20130411, end: 20130411
  11. BROMDAY 0.09% [Concomitant]
     Dosage: 1 DROP; TWICE A DAY; OPHTHALMIC
     Route: 047
     Dates: start: 20130412, end: 20130415
  12. BROMDAY 0.09% [Concomitant]
     Dosage: 1 DROP; DAILY; OPHTHALMIC
     Route: 047
     Dates: start: 20130416, end: 20130416
  13. HYPROMELLOSE [Concomitant]
     Indication: EYE LUBRICATION THERAPY
     Dosage: 1 DROP; FOUR TIMES A DAY; OPHTHALMIC
     Route: 047
     Dates: start: 20130413, end: 20130415
  14. PROPYLENE GLYCOL/MACROGOL [Concomitant]
     Indication: EYE LUBRICATION THERAPY
     Dosage: 1 DROP; FOUR TIMES A DAY; OPHTHALMIC
     Route: 047
     Dates: start: 20130413, end: 20130415
  15. SOOTHE LONG LASTING (PRESERVATIVE FREE) [Concomitant]
     Indication: DRY EYE
     Dosage: DROP; EVERY HOUR; OPHTHALMIC
     Route: 047
  16. FEXOFENADINE HYDROCHLORIDE [Concomitant]
  17. ACETYLSALICYLIC ACID/CAFFEINE/SALICYLAMIDE [Concomitant]
  18. ALREX (LOTEPREDNOL ETABONATE OPHTHALMIC SUSPENSION 0.2%) [Concomitant]
     Indication: PRODUCT USED FOR UNKNOWN INDICATION
     Dosage: DROP; OPHTHALMIC
     Route: 047
  19. OLOPATADINE HYDROCHLORIDE [Concomitant]

REACTIONS (2)
  - Vision blurred [Not Recovered/Not Resolved]
  - Medication residue present [Not Recovered/Not Resolved]
